FAERS Safety Report 16480050 (Version 3)
Quarter: 2019Q3

REPORT INFORMATION
  Report Type: Spontaneous
  Country: US (occurrence: US)
  Receive Date: 20190626
  Receipt Date: 20190914
  Transmission Date: 20191004
  Serious: Yes (Other)
  Sender: FDA-Public Use
  Company Number: US-UNITED THERAPEUTICS-UNT-2019-010668

PATIENT
  Age: 28 Month
  Sex: Female

DRUGS (19)
  1. TEMODAR [Concomitant]
     Active Substance: TEMOZOLOMIDE
     Dosage: 30 MG, TOTAL DAILY DOSE
     Route: 048
     Dates: start: 20180802, end: 20180806
  2. DIFLUCAN [Concomitant]
     Active Substance: FLUCONAZOLE
     Indication: PRODUCT USED FOR UNKNOWN INDICATION
     Dosage: 1.5 MG, QD
     Route: 048
  3. TEMODAR [Concomitant]
     Active Substance: TEMOZOLOMIDE
     Indication: NEUROBLASTOMA
     Dosage: 30 MG, TOTAL DAILY DOSE
     Route: 048
     Dates: start: 20180712, end: 20180716
  4. IRINOTECAN [Concomitant]
     Active Substance: IRINOTECAN
     Dosage: 22.6 MG, TOTAL DAILY DOSE
     Route: 041
     Dates: start: 20180802, end: 20180806
  5. ISOTRETINOIN. [Concomitant]
     Active Substance: ISOTRETINOIN
     Indication: NEUROBLASTOMA
     Dosage: 40 MG, TOTAL DAILY DOSE
     Route: 048
     Dates: start: 20190408, end: 20190408
  6. IRINOTECAN [Concomitant]
     Active Substance: IRINOTECAN
     Dosage: 23 MG, TOTAL DAILY DOSE
     Route: 041
     Dates: start: 20180911, end: 20180915
  7. SARGRAMOSTIM [Concomitant]
     Active Substance: SARGRAMOSTIM
     Indication: NEUROBLASTOMA
     Dosage: 137.5 ?G, TOTAL DAILY DOSE
     Route: 065
     Dates: start: 20190329, end: 20190404
  8. BACTRIM [Concomitant]
     Active Substance: SULFAMETHOXAZOLE\TRIMETHOPRIM
     Indication: PRODUCT USED FOR UNKNOWN INDICATION
     Dosage: UNK, BID
     Route: 048
  9. ACYCLOVIR SODIUM. [Concomitant]
     Active Substance: ACYCLOVIR SODIUM
     Indication: PRODUCT USED FOR UNKNOWN INDICATION
     Dosage: 7.5 MG, Q8H
     Route: 042
  10. UNITUXIN [Suspect]
     Active Substance: DINUTUXIMAB
     Indication: NEUROBLASTOMA
     Dosage: 7.875 MG, TOTAL DAILY DOSE, CYCLE 1
     Route: 041
     Dates: start: 20180713, end: 20180716
  11. TEMODAR [Concomitant]
     Active Substance: TEMOZOLOMIDE
     Dosage: 30 MG, TOTAL DAILY DOSE
     Route: 048
     Dates: start: 20180911, end: 20180915
  12. UNITUXIN [Suspect]
     Active Substance: DINUTUXIMAB
     Dosage: 7.875 MG, TOTAL DAILY DOSE, CYCLE 2
     Route: 041
     Dates: start: 20180803, end: 20180806
  13. UNITUXIN [Suspect]
     Active Substance: DINUTUXIMAB
     Dosage: 9.625 MG, TOTAL DAILY DOSE, CYCLE 4
     Route: 041
     Dates: start: 20190401, end: 20190404
  14. UNITUXIN [Suspect]
     Active Substance: DINUTUXIMAB
     Dosage: 9.45 MG, TOTAL DAILY DOSE, CYCLE 5
     Route: 041
     Dates: start: 20190429, end: 20190502
  15. IRINOTECAN [Concomitant]
     Active Substance: IRINOTECAN
     Indication: NEUROBLASTOMA
     Dosage: 22.6 MG, TOTAL DAILY DOSE
     Route: 041
     Dates: start: 20180712, end: 20180716
  16. ALDESLEUKIN [Concomitant]
     Active Substance: ALDESLEUKIN
     Indication: NEUROBLASTOMA
     Dosage: 1.62 MIU, TOTAL DAILY DOSE
     Route: 042
     Dates: start: 20190422, end: 20190425
  17. ALDESLEUKIN [Concomitant]
     Active Substance: ALDESLEUKIN
     Dosage: 2.52 MIU, TOTAL DAILY DOSE
     Route: 042
     Dates: start: 20190429, end: 20190502
  18. UNITUXIN [Suspect]
     Active Substance: DINUTUXIMAB
     Dosage: 8.05 MG, TOTAL DAILY DOSE, CYCLE 3
     Route: 041
     Dates: start: 20180912, end: 20180915
  19. ISOTRETINOIN. [Concomitant]
     Active Substance: ISOTRETINOIN
     Dosage: 40 MG, TOTAL DAILY DOSE
     Route: 048
     Dates: start: 20190506, end: 20190506

REACTIONS (3)
  - Optic atrophy [Not Recovered/Not Resolved]
  - Off label use [Unknown]
  - Blindness [Not Recovered/Not Resolved]

NARRATIVE: CASE EVENT DATE: 2019
